FAERS Safety Report 9131424 (Version 1)
Quarter: 2013Q1

REPORT INFORMATION
  Report Type: Spontaneous
  Country: CN (occurrence: CN)
  Receive Date: 20130301
  Receipt Date: 20130301
  Transmission Date: 20140127
  Serious: Yes (Hospitalization)
  Sender: FDA-Public Use
  Company Number: CN-NAPPMUNDI-GBR-2013-0012583

PATIENT
  Age: 62 Year
  Sex: Male

DRUGS (4)
  1. OXYCODONE HCL PR TABLET 10 MG [Suspect]
     Indication: PRODUCT USED FOR UNKNOWN INDICATION
     Dosage: 10 MG, Q12H
     Route: 048
     Dates: end: 20130129
  2. OXYCODONE HCL PR TABLET 10 MG [Suspect]
     Dosage: 10 MG, Q12H
     Route: 048
     Dates: start: 201212
  3. OXYCODONE HCL PR TABLET 10 MG [Suspect]
     Dosage: 10 MG, Q24H
     Route: 048
     Dates: start: 201209, end: 201212
  4. CELECOXIB [Concomitant]

REACTIONS (6)
  - Vomiting [Unknown]
  - Drug ineffective [Unknown]
  - Abdominal pain upper [Recovering/Resolving]
  - Local swelling [Recovering/Resolving]
  - Thrombosis [Unknown]
  - Incorrect drug dosage form administered [Unknown]
